FAERS Safety Report 4353600-1 (Version None)
Quarter: 2004Q2

REPORT INFORMATION
  Report Type: 
  Country: None (occurrence: None)
  Receive Date: 20040430
  Receipt Date: 20040419
  Transmission Date: 20050107
  Serious: Yes (Hospitalization, Other)
  Sender: FDA-Public Use
  Company Number: USA-2004-0014643

PATIENT
  Sex: Male

DRUGS (1)
  1. OXYCONTIN [Suspect]

REACTIONS (5)
  - DRUG ABUSER [None]
  - HEPATITIS [None]
  - RESPIRATORY DEPRESSION [None]
  - SELF-MEDICATION [None]
  - SLEEP DISORDER [None]
